FAERS Safety Report 22200931 (Version 2)
Quarter: 2023Q2

REPORT INFORMATION
  Report Type: Spontaneous
  Country: ES (occurrence: ES)
  Receive Date: 20230412
  Receipt Date: 20230424
  Transmission Date: 20230722
  Serious: Yes (Life-Threatening, Hospitalization, Other)
  Sender: FDA-Public Use
  Company Number: ES-AEMPS-1351515

PATIENT
  Age: 57 Year
  Sex: Male

DRUGS (5)
  1. ASPIRIN [Interacting]
     Active Substance: ASPIRIN
     Indication: Suicide attempt
     Dosage: 900 MILLIGRAM, 1 TOTAL
     Route: 048
     Dates: start: 20221123, end: 20221123
  2. BISOPROLOL [Interacting]
     Active Substance: BISOPROLOL
     Indication: Suicide attempt
     Dosage: 25 MILLIGRAM, 1 TOTAL
     Route: 048
     Dates: start: 20221123, end: 20221123
  3. METFORMIN [Interacting]
     Active Substance: METFORMIN HYDROCHLORIDE
     Indication: Suicide attempt
     Dosage: 5950 MILLIGRAM, 1 TOTAL
     Route: 048
     Dates: start: 20221123, end: 20221123
  4. INSULIN ASPART [Interacting]
     Active Substance: INSULIN ASPART
     Indication: Suicide attempt
     Dosage: 600 INTERNATIONAL UNIT, 1 TOTAL
     Route: 058
     Dates: start: 20221123, end: 20221123
  5. INSULIN GLARGINE [Interacting]
     Active Substance: INSULIN GLARGINE
     Indication: Suicide attempt
     Dosage: 900 INTERNATIONAL UNIT, 1 TOTAL
     Route: 058
     Dates: start: 20221123, end: 20221123

REACTIONS (4)
  - Acute kidney injury [Recovered/Resolved]
  - Hypoglycaemic coma [Recovered/Resolved]
  - Hypoglycaemia [Recovered/Resolved]
  - Drug interaction [Unknown]

NARRATIVE: CASE EVENT DATE: 20221123
